FAERS Safety Report 4665206-5 (Version None)
Quarter: 2005Q2

REPORT INFORMATION
  Report Type: 
  Country: None (occurrence: None)
  Receive Date: 20050517
  Receipt Date: 20050121
  Transmission Date: 20051028
  Serious: Yes (Other)
  Sender: FDA-Public Use
  Company Number: SO5-USA-00370-02

PATIENT

DRUGS (1)
  1. NAMENDA [Suspect]

REACTIONS (1)
  - CONVULSION [None]
